FAERS Safety Report 9659407 (Version 1)
Quarter: 2013Q4

REPORT INFORMATION
  Report Type: Spontaneous
  Country: FR (occurrence: FR)
  Receive Date: 20131031
  Receipt Date: 20131031
  Transmission Date: 20140711
  Serious: Yes (Hospitalization)
  Sender: FDA-Public Use
  Company Number: FR-JNJFOC-20131016861

PATIENT
  Age: 54 Year
  Sex: Male

DRUGS (9)
  1. XEPLION [Suspect]
     Indication: SCHIZOAFFECTIVE DISORDER
     Dosage: 75/4 WEEKS (3 5714 MG)
     Route: 030
     Dates: start: 20130410
  2. XEPLION [Suspect]
     Indication: SCHIZOAFFECTIVE DISORDER
     Dosage: 75/4 WEEKS (3 5714 MG)
     Route: 030
     Dates: start: 20130730
  3. XEPLION [Suspect]
     Indication: SCHIZOAFFECTIVE DISORDER
     Dosage: 75/4 WEEKS (3 5714 MG)
     Route: 030
     Dates: start: 20130702
  4. XEPLION [Suspect]
     Indication: SCHIZOAFFECTIVE DISORDER
     Route: 030
     Dates: start: 20130604
  5. XEPLION [Suspect]
     Indication: SCHIZOAFFECTIVE DISORDER
     Dosage: 75/4 WEEKS (3 5714 MG)
     Route: 030
     Dates: start: 20130507
  6. PARKINANE [Suspect]
     Indication: PRODUCT USED FOR UNKNOWN INDICATION
     Route: 048
     Dates: start: 20120131
  7. LYSANXIA [Suspect]
     Indication: PRODUCT USED FOR UNKNOWN INDICATION
     Route: 048
     Dates: start: 20120131
  8. HEPT-A-MYL [Suspect]
     Indication: PRODUCT USED FOR UNKNOWN INDICATION
     Route: 048
     Dates: start: 20120131
  9. DEROXAT [Suspect]
     Indication: PRODUCT USED FOR UNKNOWN INDICATION
     Route: 048
     Dates: start: 20120131

REACTIONS (4)
  - Agitation [Recovered/Resolved]
  - Aggression [Recovered/Resolved]
  - Delusion [Recovered/Resolved]
  - Hallucination [Recovered/Resolved]
